FAERS Safety Report 9166082 (Version 6)
Quarter: 2013Q4

REPORT INFORMATION
  Report Type: Report from Study
  Country: CA (occurrence: CA)
  Receive Date: 20130315
  Receipt Date: 20131114
  Transmission Date: 20140711
  Serious: Yes (Death, Hospitalization)
  Sender: FDA-Public Use
  Company Number: CA-BAYER-2013-026624

PATIENT
  Sex: Female
  Weight: 81.6 kg

DRUGS (15)
  1. REGORAFENIB [Suspect]
     Indication: ADENOCARCINOMA OF COLON
     Dosage: CYCLE 1, 160 MG, QD
     Route: 048
     Dates: start: 20130213, end: 20130222
  2. OXYCODONE [Concomitant]
     Indication: ABDOMINAL PAIN UPPER
     Dosage: 5 MG, PRN
     Route: 048
     Dates: start: 20130119, end: 20130302
  3. TYLENOL [PARACETAMOL] [Concomitant]
     Indication: ARTHRALGIA
     Dosage: 650 MG, PRN
     Route: 048
     Dates: start: 2003, end: 20130302
  4. ATIVAN [Concomitant]
     Indication: ANXIETY
     Dosage: 1 MG, PRN
     Route: 060
     Dates: start: 2011, end: 20130302
  5. ELAVIL [Concomitant]
     Indication: ABDOMINAL PAIN UPPER
     Dosage: 25 MG, PRN
     Route: 048
     Dates: start: 20130119, end: 20130302
  6. LOSEC [Concomitant]
     Indication: GASTROOESOPHAGEAL REFLUX DISEASE
     Dosage: 20 MG, PRN
     Route: 048
     Dates: start: 2008, end: 20130302
  7. FRAGMIN [DALTEPARIN SODIUM] [Concomitant]
     Indication: PULMONARY EMBOLISM
     Dosage: 16000 U, QD
     Route: 048
     Dates: start: 2010
  8. MAXERAN [Concomitant]
     Indication: NAUSEA
     Dosage: 10 MG, PRN
     Route: 048
     Dates: start: 2008, end: 20130302
  9. NAPROXEN [Concomitant]
     Indication: ARTHRALGIA
     Dosage: 220 MG, PRN
     Route: 048
     Dates: start: 2003
  10. DEXAMETHASONE [Concomitant]
     Indication: ARTHRALGIA
     Dosage: 2 MG, QOD
     Route: 048
     Dates: start: 201302, end: 20130302
  11. GABAPENTIN [Concomitant]
     Indication: NEUROPATHY PERIPHERAL
     Dosage: 300 MG, BID
     Route: 048
     Dates: start: 201210, end: 20130302
  12. LOMOTIL [DIPHENOXYLATE HYDROCHLORIDE] [Concomitant]
     Indication: DIARRHOEA
     Dosage: 2.5 MG, PRN
     Route: 048
     Dates: start: 201209
  13. DRUGS FOR TREATMENT OF BONE DISEASES [Concomitant]
     Indication: GENERAL PHYSICAL HEALTH DETERIORATION
     Dosage: 20 MG, PRN
     Route: 048
     Dates: start: 201212, end: 20130302
  14. VITAMIN D [Concomitant]
     Indication: VITAMIN SUPPLEMENTATION
     Dosage: 1000 U, QD
     Route: 048
     Dates: start: 201210, end: 20130302
  15. FOLIC ACID [Concomitant]
     Indication: VITAMIN SUPPLEMENTATION
     Dosage: 1000 U, QD
     Route: 048
     Dates: start: 2010, end: 20130302

REACTIONS (3)
  - Pulmonary sepsis [Fatal]
  - Upper gastrointestinal haemorrhage [Not Recovered/Not Resolved]
  - Lower gastrointestinal haemorrhage [Not Recovered/Not Resolved]
